FAERS Safety Report 9521782 (Version 2)
Quarter: 2013Q3

REPORT INFORMATION
  Report Type: Report from Study
  Country: US (occurrence: US)
  Receive Date: 20130913
  Receipt Date: 20130913
  Transmission Date: 20140515
  Serious: Yes (Hospitalization, Other)
  Sender: FDA-Public Use
  Company Number: PHEH2012US020370

PATIENT
  Age: 55 Year
  Sex: Female

DRUGS (4)
  1. GLEEVEC [Suspect]
     Indication: GASTROINTESTINAL STROMAL TUMOUR
     Dosage: 400 MG, DAILY
     Route: 048
     Dates: start: 201108, end: 20111006
  2. GLEEVEC [Suspect]
     Dosage: UNK UKN, UNK
  3. COLACE [Concomitant]
     Indication: CONSTIPATION
     Dosage: UNK UKN, PRN
  4. MULTI-VIT [Concomitant]
     Dosage: UNK UKN, UNK

REACTIONS (33)
  - Subdural haematoma [Recovered/Resolved]
  - Haemorrhage intracranial [Unknown]
  - Headache [Recovering/Resolving]
  - Vomiting [Unknown]
  - Dizziness [Unknown]
  - Neck pain [Unknown]
  - Nausea [Unknown]
  - Pneumocephalus [Unknown]
  - Ovarian fibrosis [Unknown]
  - Neoplasm progression [Recovered/Resolved]
  - Malignant neoplasm progression [Recovered/Resolved]
  - Ovarian vein thrombosis [Unknown]
  - Thrombosis [Unknown]
  - Blood pressure diastolic decreased [Unknown]
  - Blood creatinine decreased [Unknown]
  - Heart rate decreased [Unknown]
  - Blood magnesium decreased [Unknown]
  - Discomfort [Unknown]
  - Tenderness [Unknown]
  - Incision site pain [Unknown]
  - Swelling face [Unknown]
  - Eye swelling [Unknown]
  - Local swelling [Unknown]
  - Asthenia [Unknown]
  - Haemoglobin decreased [Unknown]
  - Haematocrit decreased [Unknown]
  - Platelet count decreased [Unknown]
  - Pain [Unknown]
  - Musculoskeletal stiffness [Unknown]
  - Erythema [Unknown]
  - Oedema [Unknown]
  - Muscle spasms [Unknown]
  - Abdominal discomfort [Unknown]
